FAERS Safety Report 9147724 (Version 2)
Quarter: 2013Q2

REPORT INFORMATION
  Report Type: Report from Study
  Country: US (occurrence: US)
  Receive Date: 20130307
  Receipt Date: 20130521
  Transmission Date: 20140414
  Serious: Yes (Other)
  Sender: FDA-Public Use
  Company Number: US-ABBOTT-13P-163-1056615-00

PATIENT
  Sex: Male
  Weight: 104.42 kg

DRUGS (5)
  1. HUMIRA [Suspect]
     Indication: PSORIATIC ARTHROPATHY
     Route: 058
     Dates: start: 2006, end: 2006
  2. HUMIRA [Suspect]
     Route: 058
     Dates: start: 2008, end: 2008
  3. HUMIRA [Suspect]
     Route: 058
     Dates: start: 201302
  4. UNKNOWN MEDICATION [Concomitant]
     Indication: DIABETES MELLITUS
  5. OLD UNKNOWN MEDICATION [Concomitant]
     Indication: HYPERTENSION

REACTIONS (5)
  - Coronary artery occlusion [Recovering/Resolving]
  - Myocardial infarction [Recovered/Resolved]
  - Psoriatic arthropathy [Recovered/Resolved]
  - Psoriasis [Not Recovered/Not Resolved]
  - Arthralgia [Not Recovered/Not Resolved]
